APPROVED DRUG PRODUCT: CARVEDILOL
Active Ingredient: CARVEDILOL
Strength: 25MG
Dosage Form/Route: TABLET;ORAL
Application: A078240 | Product #004
Applicant: PLIVA HRVATSKA DOO
Approved: Oct 30, 2007 | RLD: No | RS: No | Type: DISCN